FAERS Safety Report 7230755-2 (Version None)
Quarter: 2011Q1

REPORT INFORMATION
  Report Type: 
  Country: None (occurrence: None)
  Receive Date: 20110118
  Receipt Date: 20110107
  Transmission Date: 20110831
  Serious: Yes (Other)
  Sender: FDA-Public Use
  Company Number: PHHY2011DE01512

PATIENT
  Sex: Female

DRUGS (2)
  1. RASILEZ HCT [Suspect]
     Indication: HYPERTENSION
     Dosage: 150 MG ALISKIREN AND 25 MG HYDROCHLOROTHIAZIDE
     Dates: start: 20100101
  2. CONCOR [Concomitant]
     Dosage: 5 MG, UNK

REACTIONS (2)
  - RAYNAUD'S PHENOMENON [None]
  - PERIPHERAL COLDNESS [None]
